FAERS Safety Report 5670284-0 (Version None)
Quarter: 2008Q1

REPORT INFORMATION
  Report Type: 
  Country: None (occurrence: None)
  Receive Date: 20080318
  Receipt Date: 20080310
  Transmission Date: 20080703
  Serious: Yes (Other)
  Sender: FDA-Public Use
  Company Number: DE-BAYER-200814700GPV

PATIENT
  Age: 48 Year
  Sex: Male
  Weight: 80 kg

DRUGS (2)
  1. MAGNEVIST [Suspect]
     Indication: ANGIOGRAM
     Route: 042
  2. FENISTIL [Concomitant]
     Indication: NASAL CONGESTION
     Route: 042

REACTIONS (4)
  - ANGIOEDEMA [None]
  - CONJUNCTIVAL HYPERAEMIA [None]
  - NASAL CONGESTION [None]
  - THROAT IRRITATION [None]
